FAERS Safety Report 8233355-0 (Version None)
Quarter: 2012Q1

REPORT INFORMATION
  Report Type: 
  Country: None (occurrence: None)
  Receive Date: 20120323
  Receipt Date: 20120323
  Transmission Date: 20120608
  Serious: Yes (Hospitalization)
  Sender: FDA-Public Use
  Company Number: None

PATIENT

DRUGS (2)
  1. COUMADIN [Suspect]
  2. PRADAXA [Suspect]

REACTIONS (3)
  - FALL [None]
  - CEREBRAL HAEMORRHAGE [None]
  - MEDICATION ERROR [None]
